FAERS Safety Report 5368791-3 (Version None)
Quarter: 2007Q2

REPORT INFORMATION
  Report Type: 
  Country: None (occurrence: None)
  Receive Date: 20070620
  Receipt Date: 20070612
  Transmission Date: 20071010
  Serious: Yes (Other)
  Sender: FDA-Public Use
  Company Number: 163-20785-07051375

PATIENT
  Age: 54 Year
  Sex: Female

DRUGS (2)
  1. THALOMID [Suspect]
     Indication: MULTIPLE MYELOMA
     Dosage: SEE IMAGE
     Route: 048
     Dates: start: 20060901, end: 20061101
  2. THALOMID [Suspect]
     Indication: MULTIPLE MYELOMA
     Dosage: SEE IMAGE
     Route: 048
     Dates: start: 20061101, end: 20070522

REACTIONS (3)
  - BLOOD HUMAN CHORIONIC GONADOTROPIN POSITIVE [None]
  - OVARIAN CYST [None]
  - PELVIC MASS [None]
